FAERS Safety Report 6937381-0 (Version None)
Quarter: 2010Q3

REPORT INFORMATION
  Report Type: 
  Country: None (occurrence: None)
  Receive Date: 20100823
  Receipt Date: 20100624
  Transmission Date: 20110219
  Serious: Yes (Hospitalization)
  Sender: FDA-Public Use
  Company Number: DE-US-EMD SERONO, INC.-7005706

PATIENT
  Sex: Female

DRUGS (6)
  1. REBIF [Suspect]
     Indication: PRODUCT USED FOR UNKNOWN INDICATION
     Dates: start: 20080101, end: 20100501
  2. LYRICA [Concomitant]
  3. CITALOPRAM HYDROBROMIDE [Concomitant]
  4. MIRAPEX [Concomitant]
  5. IBUPROFEN [Concomitant]
  6. OMEP [Concomitant]

REACTIONS (3)
  - EPILEPSY [None]
  - HEPATIC ENZYME INCREASED [None]
  - THROMBOCYTOPENIA [None]
